FAERS Safety Report 13783655 (Version 2)
Quarter: 2017Q3

REPORT INFORMATION
  Report Type: Spontaneous
  Country: KR (occurrence: KR)
  Receive Date: 20170724
  Receipt Date: 20170922
  Transmission Date: 20171127
  Serious: No
  Sender: FDA-Public Use
  Company Number: KR-009507513-1702KOR010224

PATIENT
  Age: 54 Year
  Sex: Male
  Weight: 64.4 kg

DRUGS (15)
  1. EMEND (FOSAPREPITANT DIMEGLUMINE) [Suspect]
     Active Substance: FOSAPREPITANT DIMEGLUMINE
     Indication: PROPHYLAXIS OF NAUSEA AND VOMITING
     Dosage: 150 MG, ONCE
     Route: 042
     Dates: start: 20160611, end: 20160611
  2. STOGAR [Concomitant]
     Active Substance: LAFUTIDINE
     Indication: GASTRITIS PROPHYLAXIS
     Dosage: 10 MG (1 TABLET), BID
     Route: 048
     Dates: start: 20160613
  3. ENDOXAN [Concomitant]
     Active Substance: CYCLOPHOSPHAMIDE
     Indication: LYMPHOMA
     Dosage: 1270 MG ONCE CYCLE 1
     Route: 042
     Dates: start: 20160611, end: 20160611
  4. COZAAR PLUS [Concomitant]
     Active Substance: HYDROCHLOROTHIAZIDE\LOSARTAN POTASSIUM
     Indication: HYPERTENSION
     Dosage: 1 TABLET, QD
     Route: 048
     Dates: start: 20160603
  5. ATENOLOL. [Concomitant]
     Active Substance: ATENOLOL
     Indication: HYPERTENSION
     Dosage: 25 MG (1 TABLET), QD
     Route: 048
     Dates: start: 20160603
  6. MABTHERA [Concomitant]
     Active Substance: RITUXIMAB
     Indication: LYMPHOMA
     Dosage: 635 MG, ONCE CYCLE 1
     Route: 042
     Dates: start: 20160611, end: 20160611
  7. SOLONDO [Concomitant]
     Active Substance: PREDNISOLONE
     Indication: PREMEDICATION
     Dosage: 100 MG, QD
     Route: 048
     Dates: start: 20160611, end: 20160615
  8. KYTRIL [Concomitant]
     Active Substance: GRANISETRON HYDROCHLORIDE
     Indication: PREMEDICATION
     Dosage: 1 ML, ONCE
     Route: 042
     Dates: start: 20160611, end: 20160611
  9. DUVIE [Concomitant]
     Indication: DIABETES MELLITUS
     Dosage: 0.5 MG (1 TABLET), QD
     Route: 048
     Dates: start: 201606
  10. MUCOSTA [Concomitant]
     Active Substance: REBAMIPIDE
     Indication: GASTRITIS PROPHYLAXIS
     Dosage: 100 MG (1 TABLET), TID
     Route: 048
     Dates: start: 20160613
  11. HUMULIN R [Concomitant]
     Active Substance: INSULIN HUMAN
     Indication: DIABETES MELLITUS
     Dosage: 4 IU, ONCE
     Route: 058
     Dates: start: 20160610, end: 20160610
  12. VINCRISTINE SULFATE. [Concomitant]
     Active Substance: VINCRISTINE SULFATE
     Indication: LYMPHOMA
     Dosage: CONCENTRATION: 1MG/ML 2ML; 2 MG ONCE CYCLE 1
     Route: 042
     Dates: start: 20160611, end: 20160611
  13. DIABEX [Concomitant]
     Active Substance: METFORMIN HYDROCHLORIDE
     Indication: DIABETES MELLITUS
     Dosage: 500 MG (1 TABLET), BID
     Route: 048
     Dates: start: 201606
  14. TAGAMET [Concomitant]
     Active Substance: CIMETIDINE
     Indication: GASTRITIS PROPHYLAXIS
     Dosage: 200 MG (1 TABLET), BID
     Route: 048
     Dates: start: 201606, end: 20160613
  15. ADRIAMYCIN [Concomitant]
     Active Substance: DOXORUBICIN HYDROCHLORIDE
     Indication: LYMPHOMA
     Dosage: 85 MG, ONCE CYCLE 1
     Route: 042
     Dates: start: 20160611, end: 20160611

REACTIONS (1)
  - Back pain [Recovered/Resolved]

NARRATIVE: CASE EVENT DATE: 20160618
